FAERS Safety Report 4899080-9 (Version None)
Quarter: 2006Q1

REPORT INFORMATION
  Report Type: 
  Country: None (occurrence: None)
  Receive Date: 20060202
  Receipt Date: 20051116
  Transmission Date: 20060701
  Serious: Yes (Hospitalization)
  Sender: FDA-Public Use
  Company Number: 2005UW17478

PATIENT
  Age: 40 Year
  Sex: Male
  Weight: 115 kg

DRUGS (2)
  1. CRESTOR [Suspect]
     Route: 048
     Dates: start: 20040501, end: 20051108
  2. NIACIN [Concomitant]
     Route: 048

REACTIONS (4)
  - BLOOD THYROID STIMULATING HORMONE INCREASED [None]
  - MYALGIA [None]
  - MYOGLOBIN BLOOD INCREASED [None]
  - MYOSITIS [None]
